FAERS Safety Report 24136327 (Version 1)
Quarter: 2024Q3

REPORT INFORMATION
  Report Type: Spontaneous
  Country: DE (occurrence: DE)
  Receive Date: 20240725
  Receipt Date: 20240725
  Transmission Date: 20241017
  Serious: Yes (Other)
  Sender: RANBAXY
  Company Number: DE-BFARM-24003089

PATIENT
  Age: 52 Year
  Sex: Male

DRUGS (6)
  1. VENLAFAXINE [Suspect]
     Active Substance: VENLAFAXINE HYDROCHLORIDE
     Indication: Product used for unknown indication
     Dosage: 37.5 MILLIGRAM, DAILY
     Route: 048
     Dates: start: 20231116
  2. VENLAFAXINE [Suspect]
     Active Substance: VENLAFAXINE HYDROCHLORIDE
     Dosage: 75 MILLIGRAM, DAILY
     Route: 048
     Dates: start: 20231110, end: 20231115
  3. VENLAFAXINE [Suspect]
     Active Substance: VENLAFAXINE HYDROCHLORIDE
     Dosage: 225 MILLIGRAM, DAILY, TAKING FOR A LONG TIME
     Route: 048
     Dates: start: 20231105
  4. VENLAFAXINE [Suspect]
     Active Substance: VENLAFAXINE HYDROCHLORIDE
     Dosage: 150 MILLIGRAM, DAILY
     Route: 048
     Dates: start: 20231106, end: 20231109
  5. BUPROPION [Concomitant]
     Active Substance: BUPROPION
     Indication: Product used for unknown indication
     Dosage: 150 MILLIGRAM, DAILY
     Route: 048
     Dates: start: 20231106
  6. PIPAMPERONE HYDROCHLORIDE [Concomitant]
     Active Substance: PIPAMPERONE HYDROCHLORIDE
     Indication: Product used for unknown indication
     Dosage: 40 MILLIGRAM, DAILY, TAKING FOR A LONG TIME
     Route: 048

REACTIONS (5)
  - Hyperhidrosis [Recovering/Resolving]
  - Withdrawal syndrome [Recovering/Resolving]
  - Head discomfort [Recovering/Resolving]
  - Chills [Recovering/Resolving]
  - Loss of libido [Unknown]

NARRATIVE: CASE EVENT DATE: 20231113
